FAERS Safety Report 5599680-7 (Version None)
Quarter: 2008Q1

REPORT INFORMATION
  Report Type: 
  Country: None (occurrence: None)
  Receive Date: 20080123
  Receipt Date: 20080114
  Transmission Date: 20080703
  Serious: Yes (Hospitalization, Other)
  Sender: FDA-Public Use
  Company Number: FR-BRISTOL-MYERS SQUIBB COMPANY-14043558

PATIENT
  Age: 75 Year
  Sex: Female

DRUGS (8)
  1. ENDOXAN [Suspect]
     Indication: BREAST CANCER
     Dosage: JULY TO NOV1986 RECEIVED 6 COURSES,FROM MARCH TO SEP2002 RECEIVED 6 COURSES.
     Route: 042
     Dates: start: 19860701, end: 20020901
  2. METHOTREXATE [Suspect]
     Indication: BREAST CANCER
     Route: 042
     Dates: start: 20020301, end: 20020901
  3. FARMORUBICIN [Suspect]
     Indication: BREAST CANCER
     Route: 042
     Dates: start: 19860701, end: 19861101
  4. FLUOROURACIL [Suspect]
     Indication: BREAST CANCER
     Dosage: JULY TO NOV1986 RECEIVED 6 COURSES,FROM MARCH TO SEP2002 RECEIVED 6 COURSES.
     Route: 042
     Dates: start: 19860701, end: 20020901
  5. RADIOTHERAPY [Suspect]
  6. APROVEL [Concomitant]
     Route: 048
  7. DAFLON [Concomitant]
     Dosage: 2 DOSAGE FORM=2 TABS
  8. ARIMIDEX [Concomitant]
     Dates: start: 20030301

REACTIONS (1)
  - HAIRY CELL LEUKAEMIA [None]
